FAERS Safety Report 5875346-0 (Version None)
Quarter: 2008Q3

REPORT INFORMATION
  Report Type: 
  Country: None (occurrence: None)
  Receive Date: 20080904
  Receipt Date: 20080819
  Transmission Date: 20090109
  Serious: Yes (Hospitalization)
  Sender: FDA-Public Use
  Company Number: 8036345

PATIENT
  Age: 42 Year
  Sex: Male

DRUGS (8)
  1. PREDNISOLONE [Suspect]
     Indication: HENOCH-SCHONLEIN PURPURA
     Dosage: 60 MG 1/D PO
     Route: 048
  2. PREDNISOLONE [Suspect]
     Indication: HENOCH-SCHONLEIN PURPURA
     Dosage: 50 MG 1/D PO
     Route: 048
  3. PREDNISOLONE [Suspect]
     Indication: HENOCH-SCHONLEIN PURPURA
     Dosage: 30 MG 1/D PO
     Route: 048
  4. PREDNISOLONE [Suspect]
     Indication: HENOCH-SCHONLEIN PURPURA
     Dosage: 40 MG 1/D PO
     Route: 048
  5. PREDNISOLONE [Suspect]
     Indication: HENOCH-SCHONLEIN PURPURA
     Dosage: 25 MG 1/D PO
     Route: 048
  6. PREDNISOLONE [Suspect]
     Indication: HENOCH-SCHONLEIN PURPURA
     Dosage: 10 MG 1/D PO
     Route: 048
  7. PREDNISOLONE [Suspect]
     Indication: HENOCH-SCHONLEIN PURPURA
     Dosage: 1/D PO
     Route: 048
  8. OMEPRAZOLE [Concomitant]

REACTIONS (17)
  - ABDOMINAL PAIN [None]
  - ARTHRALGIA [None]
  - CEREBRAL HAEMORRHAGE [None]
  - CONVULSION [None]
  - DIALYSIS [None]
  - DYSPEPSIA [None]
  - DYSPHASIA [None]
  - GASTROINTESTINAL DISORDER [None]
  - GLOMERULONEPHRITIS PROLIFERATIVE [None]
  - HAEMOGLOBIN DECREASED [None]
  - HEADACHE [None]
  - HYPERTENSION [None]
  - MUSCULAR WEAKNESS [None]
  - NEPHRITIS [None]
  - OEDEMA PERIPHERAL [None]
  - PROTHROMBIN TIME PROLONGED [None]
  - RENAL IMPAIRMENT [None]
